FAERS Safety Report 21421781 (Version 1)
Quarter: 2022Q4

REPORT INFORMATION
  Report Type: Spontaneous
  Country: US (occurrence: US)
  Receive Date: 20221007
  Receipt Date: 20221007
  Transmission Date: 20230112
  Serious: No
  Sender: FDA-Public Use
  Company Number: US-SA-SAC20220930000519

PATIENT
  Sex: Female

DRUGS (1)
  1. DUPIXENT [Suspect]
     Active Substance: DUPILUMAB
     Dosage: 300 MG; FREQUENCY: OTHER
     Route: 058

REACTIONS (5)
  - Skin discolouration [Recovered/Resolved]
  - Skin exfoliation [Unknown]
  - Erythema [Recovered/Resolved]
  - Rash macular [Recovered/Resolved]
  - Therapeutic response shortened [Unknown]
